FAERS Safety Report 7550316-5 (Version None)
Quarter: 2011Q2

REPORT INFORMATION
  Report Type: 
  Country: None (occurrence: None)
  Receive Date: 20110615
  Receipt Date: 20110309
  Transmission Date: 20111010
  Serious: Yes (Life-Threatening, Other)
  Sender: FDA-Public Use
  Company Number: JP-BAYER-200914974BYL

PATIENT
  Age: 81 Year
  Sex: Male

DRUGS (6)
  1. NEXAVAR [Suspect]
     Indication: RENAL CELL CARCINOMA
     Dosage: 400 MG, QD
     Route: 048
     Dates: start: 20081111, end: 20090711
  2. NEXAVAR [Suspect]
     Dosage: 400 MG, QD
     Route: 048
     Dates: start: 20100311, end: 20100511
  3. NEXAVAR [Suspect]
     Route: 048
     Dates: start: 20090813, end: 20091204
  4. OMEPRAZOLE [Concomitant]
     Indication: PROPHYLAXIS
     Dosage: 40 MG (DAILY DOSE), , INTRAVENOUS
     Route: 042
     Dates: start: 20091203, end: 20091211
  5. LANSOPRAZOLE [Concomitant]
     Indication: PROPHYLAXIS AGAINST GASTROINTESTINAL ULCER
     Dosage: 15 MG (DAILY DOSE), , ORAL
     Route: 048
     Dates: start: 20091221, end: 20100520
  6. NEXAVAR [Suspect]
     Dosage: 200 MG, QD
     Route: 048
     Dates: start: 20100107, end: 20100310

REACTIONS (8)
  - HYPERTENSION [None]
  - DECREASED APPETITE [None]
  - DIARRHOEA [None]
  - ANAEMIA [None]
  - EPISTAXIS [None]
  - ATELECTASIS [None]
  - PALMAR-PLANTAR ERYTHRODYSAESTHESIA SYNDROME [None]
  - PLATELET COUNT DECREASED [None]
